FAERS Safety Report 8036320-1 (Version None)
Quarter: 2012Q1

REPORT INFORMATION
  Report Type: 
  Country: None (occurrence: None)
  Receive Date: 20120111
  Receipt Date: 20111017
  Transmission Date: 20120608
  Serious: No
  Sender: FDA-Public Use
  Company Number: US-GLAXOSMITHKLINE-A0949348A

PATIENT
  Age: 77 Year
  Sex: Male

DRUGS (5)
  1. JALYN [Suspect]
     Indication: PROSTATOMEGALY
     Dosage: 1CAP PER DAY
     Route: 048
     Dates: start: 20110901
  2. LEVOTHYROXINE SODIUM [Concomitant]
  3. OXYGEN [Concomitant]
  4. LOSARTAN POTASSIUM [Concomitant]
  5. MELOXICAM [Concomitant]

REACTIONS (3)
  - URINE OUTPUT DECREASED [None]
  - NOCTURIA [None]
  - DRUG INEFFECTIVE [None]
